FAERS Safety Report 25330340 (Version 3)
Quarter: 2025Q3

REPORT INFORMATION
  Report Type: Report from Study
  Country: US (occurrence: US)
  Receive Date: 20250519
  Receipt Date: 20250711
  Transmission Date: 20251020
  Serious: No
  Sender: SUNOVION
  Company Number: US-SUMITOMO PHARMA SWITZERLAND GMBH-2025SPA005007

PATIENT

DRUGS (14)
  1. ORGOVYX [Suspect]
     Active Substance: RELUGOLIX
     Indication: Prostate cancer
     Dosage: 360 MG, SINGLE
     Route: 048
     Dates: start: 202504, end: 202504
  2. ORGOVYX [Suspect]
     Active Substance: RELUGOLIX
     Dosage: 120 MG, QD
     Route: 048
     Dates: start: 202504
  3. CALCIUM [Concomitant]
     Active Substance: CALCIUM
     Route: 065
  4. FISH OIL [Concomitant]
     Active Substance: FISH OIL
     Route: 048
  5. GLIPIZIDE [Concomitant]
     Active Substance: GLIPIZIDE
     Route: 048
  6. LUMIGAN [Concomitant]
     Active Substance: BIMATOPROST
     Route: 065
  7. METFORMIN [Concomitant]
     Active Substance: METFORMIN HYDROCHLORIDE
     Route: 065
  8. Men 50 Plus [Concomitant]
     Dosage: UNK, QD
     Route: 048
  9. TADALAFIL [Concomitant]
     Active Substance: TADALAFIL
     Route: 048
  10. Triple Flex [Concomitant]
     Route: 065
  11. TRULICITY [Concomitant]
     Active Substance: DULAGLUTIDE
     Route: 065
  12. VITAMIN D3 [Concomitant]
     Active Substance: CHOLECALCIFEROL
     Route: 048
  13. VITAMINS [Concomitant]
     Active Substance: VITAMINS
     Route: 065
  14. BASAGLAR [Concomitant]
     Active Substance: INSULIN GLARGINE
     Route: 065

REACTIONS (4)
  - Glycosylated haemoglobin increased [Unknown]
  - Weight decreased [Unknown]
  - Blood glucose increased [Unknown]
  - Hot flush [Unknown]
